FAERS Safety Report 9410243 (Version 2)
Quarter: 2013Q3

REPORT INFORMATION
  Report Type: Report from Study
  Country: US (occurrence: US)
  Receive Date: 20130719
  Receipt Date: 20130812
  Transmission Date: 20140515
  Serious: Yes (Other)
  Sender: FDA-Public Use
  Company Number: US-JNJFOC-20130701015

PATIENT
  Sex: Male
  Weight: 72.58 kg

DRUGS (17)
  1. ZYTIGA [Suspect]
     Indication: PROSTATE CANCER
     Route: 048
     Dates: start: 201303
  2. ZYTIGA [Suspect]
     Indication: PROSTATE CANCER
     Dosage: 250MG TABLET
     Route: 048
     Dates: start: 20130402
  3. PREDNISONE [Suspect]
     Indication: PROSTATE CANCER
     Route: 048
     Dates: start: 201303
  4. METOPROLOL [Concomitant]
     Indication: BLOOD PRESSURE
     Route: 048
     Dates: start: 2003
  5. DOXAZOSIN [Concomitant]
     Indication: URINARY INCONTINENCE
     Route: 048
     Dates: start: 201302
  6. NITROSTAT [Concomitant]
     Indication: CHEST PAIN
     Route: 060
     Dates: start: 1998
  7. AMLODIPINE [Concomitant]
     Indication: CARDIAC OPERATION
     Route: 048
     Dates: start: 1998
  8. SERTRALINE [Concomitant]
     Indication: FEELING OF RELAXATION
     Route: 048
     Dates: start: 1998
  9. SUCRALFATE [Concomitant]
     Indication: OESOPHAGEAL PAIN
     Route: 048
     Dates: start: 2011
  10. LUPRON [Concomitant]
     Indication: URINARY INCONTINENCE
     Route: 065
     Dates: start: 201211
  11. CLOPIDOGREL [Concomitant]
     Indication: CARDIAC DISORDER
     Route: 048
     Dates: start: 1998
  12. PRAVASTATIN [Concomitant]
     Indication: BLOOD CHOLESTEROL
     Route: 048
     Dates: start: 201303, end: 201306
  13. ASPIRIN [Concomitant]
     Indication: CARDIAC DISORDER
     Route: 048
     Dates: start: 1998
  14. PROBIOTIC [Concomitant]
     Indication: DYSPEPSIA
     Route: 065
  15. DOCUSATE SODIUM [Concomitant]
     Indication: PRODUCT USED FOR UNKNOWN INDICATION
     Route: 065
  16. ZOLPIDEM [Concomitant]
     Indication: INSOMNIA
     Route: 065
  17. MULTIVITAMINS [Concomitant]
     Indication: PRODUCT USED FOR UNKNOWN INDICATION
     Route: 065

REACTIONS (12)
  - Visual acuity reduced [Recovering/Resolving]
  - Fungal infection [Recovering/Resolving]
  - Contusion [Recovering/Resolving]
  - Fatigue [Recovering/Resolving]
  - Malaise [Recovering/Resolving]
  - Chest discomfort [Recovering/Resolving]
  - Dizziness [Recovering/Resolving]
  - Local swelling [Recovering/Resolving]
  - Oesophageal pain [Recovering/Resolving]
  - Pollakiuria [Recovering/Resolving]
  - Candida infection [Recovering/Resolving]
  - Cough [Recovering/Resolving]
